FAERS Safety Report 13836269 (Version 1)
Quarter: 2017Q3

REPORT INFORMATION
  Report Type: Spontaneous
  Country: US (occurrence: US)
  Receive Date: 20170804
  Receipt Date: 20170804
  Transmission Date: 20171127
  Serious: Yes (Life-Threatening, Other)
  Sender: FDA-Public Use
  Company Number: US-009507513-1708USA001674

PATIENT
  Sex: Female
  Weight: 113.4 kg

DRUGS (15)
  1. PRAVASTATIN. [Concomitant]
     Active Substance: PRAVASTATIN
  2. PRINIVIL [Concomitant]
     Active Substance: LISINOPRIL
  3. BELSOMRA [Suspect]
     Active Substance: SUVOREXANT
     Indication: SLEEP DISORDER
     Dosage: 15 MG, UNK
     Route: 048
     Dates: start: 20170510, end: 20170519
  4. BELSOMRA [Suspect]
     Active Substance: SUVOREXANT
     Indication: SLEEP DISORDER
     Dosage: 20 MG, HS
     Dates: start: 20170519, end: 20170608
  5. BUSPIRONE HYDROCHLORIDE. [Concomitant]
     Active Substance: BUSPIRONE HYDROCHLORIDE
  6. TRADJENTA [Concomitant]
     Active Substance: LINAGLIPTIN
  7. TRAMADOL HYDROCHLORIDE. [Concomitant]
     Active Substance: TRAMADOL HYDROCHLORIDE
  8. CHOLECALCIFEROL [Concomitant]
     Active Substance: CHOLECALCIFEROL
  9. ASPIRIN. [Concomitant]
     Active Substance: ASPIRIN
  10. JANUVIA [Concomitant]
     Active Substance: SITAGLIPTIN PHOSPHATE
  11. BACLOFEN. [Concomitant]
     Active Substance: BACLOFEN
  12. TYLENOL [Concomitant]
     Active Substance: ACETAMINOPHEN
  13. MELATONIN [Concomitant]
     Active Substance: MELATONIN
  14. RANITIDINE. [Concomitant]
     Active Substance: RANITIDINE
  15. METFORMIN HYDROCHLORIDE. [Concomitant]
     Active Substance: METFORMIN HYDROCHLORIDE

REACTIONS (4)
  - Emotional disorder [Unknown]
  - Drug ineffective [Unknown]
  - Crying [Not Recovered/Not Resolved]
  - Suicidal behaviour [Recovered/Resolved]

NARRATIVE: CASE EVENT DATE: 2017
